FAERS Safety Report 25957757 (Version 1)
Quarter: 2025Q4

REPORT INFORMATION
  Report Type: Spontaneous
  Country: JP (occurrence: JP)
  Receive Date: 20251024
  Receipt Date: 20251024
  Transmission Date: 20260118
  Serious: Yes (Death, Other)
  Sender: MERCK SHARP & DOHME LLC
  Company Number: JP-009507513-2343102

PATIENT
  Age: 51 Year
  Sex: Male

DRUGS (3)
  1. KEYTRUDA [Suspect]
     Active Substance: PEMBROLIZUMAB
     Indication: Gingival cancer
     Route: 065
  2. FLUOROURACIL [Suspect]
     Active Substance: FLUOROURACIL
     Indication: Gingival cancer
     Dosage: 1000/M2 X 4
     Route: 065
  3. CISPLATIN [Suspect]
     Active Substance: CISPLATIN
     Indication: Gingival cancer

REACTIONS (4)
  - Death [Fatal]
  - Inappropriate schedule of product administration [Unknown]
  - Myocarditis [Unknown]
  - Rhabdomyolysis [Unknown]
